FAERS Safety Report 16276828 (Version 2)
Quarter: 2019Q2

REPORT INFORMATION
  Report Type: Report from Study
  Country: None (occurrence: NL)
  Receive Date: 20190506
  Receipt Date: 20190508
  Transmission Date: 20190711
  Serious: Yes (Other)
  Sender: FDA-Public Use
  Company Number: NL-ABBVIE-18S-114-2470439-00

PATIENT
  Age: 69 Year
  Sex: Male
  Weight: 59 kg

DRUGS (2)
  1. DUODOPA [Suspect]
     Active Substance: CARBIDOPA\LEVODOPA
     Dosage: MD: 5.5, CD: 2.1, ED: 1.0 16 HOUR ADMINISTRATION
     Route: 050
  2. DUODOPA [Suspect]
     Active Substance: CARBIDOPA\LEVODOPA
     Indication: PRODUCT USED FOR UNKNOWN INDICATION
     Dosage: MD: 5.5 CD: 2.0 ED:1.0
     Route: 050
     Dates: start: 20170109

REACTIONS (15)
  - Hyperphagia [Unknown]
  - Blindness unilateral [Not Recovered/Not Resolved]
  - Memory impairment [Not Recovered/Not Resolved]
  - Product administration error [Recovered/Resolved]
  - Weight decreased [Not Recovered/Not Resolved]
  - Device dislocation [Unknown]
  - Fibroma [Not Recovered/Not Resolved]
  - Malaise [Not Recovered/Not Resolved]
  - Fall [Not Recovered/Not Resolved]
  - Orthostatic hypotension [Not Recovered/Not Resolved]
  - Choking [Not Recovered/Not Resolved]
  - Gait disturbance [Not Recovered/Not Resolved]
  - Back pain [Not Recovered/Not Resolved]
  - Weight increased [Unknown]
  - Spinal synovial cyst [Not Recovered/Not Resolved]

NARRATIVE: CASE EVENT DATE: 201808
